FAERS Safety Report 20430374 (Version 2)
Quarter: 2022Q1

REPORT INFORMATION
  Report Type: Report from Study
  Country: FR (occurrence: FR)
  Receive Date: 20220204
  Receipt Date: 20220207
  Transmission Date: 20220424
  Serious: Yes (Hospitalization, Other)
  Sender: FDA-Public Use
  Company Number: FR-SERVIER-S20006183

PATIENT

DRUGS (13)
  1. PEGASPARGASE [Suspect]
     Active Substance: PEGASPARGASE
     Indication: Acute lymphocytic leukaemia
     Dosage: 4200 IU  D12, D26
     Route: 042
     Dates: start: 20200227, end: 20200312
  2. PEGASPARGASE [Suspect]
     Active Substance: PEGASPARGASE
     Dosage: 4050 IU  D15, D43
     Route: 042
     Dates: start: 20200415
  3. VINCRISTINE [Suspect]
     Active Substance: VINCRISTINE
     Indication: Acute lymphocytic leukaemia
     Dosage: 2.0 MG, D8, D15, D22, D29
     Route: 042
     Dates: start: 20200223, end: 20200316
  4. VINCRISTINE [Suspect]
     Active Substance: VINCRISTINE
     Dosage: 2.0 MG, D15, D22, D43, D50
     Route: 042
     Dates: start: 20200415
  5. TN UNSPECIFIED [Concomitant]
     Indication: Acute lymphocytic leukaemia
     Dosage: 1600 MG, D1, D29
     Route: 042
     Dates: start: 20200401, end: 20200428
  6. TN UNSPECIFIED [Concomitant]
     Indication: Acute lymphocytic leukaemia
     Dosage: 120 MG, D3-D6, 10-13, 31-34, 38
     Route: 042
     Dates: start: 20200403
  7. TN UNSPECIFIED [Concomitant]
     Dosage: 30 MG, D3, 31
     Route: 037
     Dates: start: 20200403, end: 20200430
  8. TN UNSPECIFIED [Concomitant]
     Indication: Acute lymphocytic leukaemia
     Dosage: 15 MG, D9, D12, D18, D24
     Route: 037
     Dates: start: 20200224, end: 20200312
  9. TN UNSPECIFIED [Concomitant]
     Dosage: 15 MG, D3, 31
     Route: 037
     Dates: start: 20200403, end: 20200430
  10. TN UNSPECIFIED [Concomitant]
     Indication: Acute lymphocytic leukaemia
     Dosage: 15 MG, D3, 31
     Route: 037
     Dates: start: 20200403, end: 20200430
  11. TN UNSPECIFIED [Concomitant]
     Indication: Acute lymphocytic leukaemia
     Dosage: 100 MG, D1-D14, D29-D42
     Route: 048
     Dates: start: 20200401, end: 20200511
  12. TN UNSPECIFIED [Concomitant]
     Indication: Acute lymphocytic leukaemia
     Dosage: 67.5 MG, D8, D15, D22, D29
     Route: 042
     Dates: start: 20200223, end: 20200316
  13. TN UNSPECIFIED [Concomitant]
     Indication: Acute lymphocytic leukaemia
     Dosage: 100 MG, D8 TO D29
     Route: 048
     Dates: start: 20200223, end: 20200314

REACTIONS (2)
  - Cholestasis [Recovered/Resolved]
  - Weight decreased [Recovered/Resolved]

NARRATIVE: CASE EVENT DATE: 20200330
